FAERS Safety Report 4350449-0 (Version None)
Quarter: 2004Q2

REPORT INFORMATION
  Report Type: 
  Country: None (occurrence: None)
  Receive Date: 20040427
  Receipt Date: 20040407
  Transmission Date: 20050107
  Serious: Yes (Death)
  Sender: FDA-Public Use
  Company Number: 20040400280

PATIENT
  Age: 51 Year
  Sex: Female

DRUGS (1)
  1. MORPHINE [Suspect]
     Indication: PAIN
     Dosage: 0.5 MG/HR CONTINUOUS IT
     Dates: start: 20040202, end: 20040325

REACTIONS (4)
  - BREAST CANCER METASTATIC [None]
  - METASTASES TO CENTRAL NERVOUS SYSTEM [None]
  - MOTOR DYSFUNCTION [None]
  - SPEECH DISORDER [None]
